FAERS Safety Report 5978539-7 (Version None)
Quarter: 2008Q4

REPORT INFORMATION
  Report Type: 
  Country: None (occurrence: None)
  Receive Date: 20081204
  Receipt Date: 20080418
  Transmission Date: 20090506
  Serious: No
  Sender: FDA-Public Use
  Company Number: US-BAYER-200811838BCC

PATIENT
  Age: 74 Year
  Sex: Female
  Weight: 52 kg

DRUGS (11)
  1. ALEVE (CAPLET) [Suspect]
     Indication: ANALGESIA
     Dosage: UNIT DOSE: 220 MG
     Route: 048
     Dates: start: 20080418, end: 20080418
  2. SYNTHROID [Concomitant]
  3. FOLIC ACID [Concomitant]
  4. CELEXA [Concomitant]
  5. COLACE [Concomitant]
  6. PRILOSEC [Concomitant]
  7. INSULIN [Concomitant]
  8. FUROSEMIDE [Concomitant]
  9. OXYBUTYNIN CHLORIDE [Concomitant]
  10. LANTUS [Concomitant]
  11. FENTANYL-100 [Concomitant]

REACTIONS (3)
  - BURNING SENSATION [None]
  - ERYTHEMA [None]
  - PRURITUS [None]
